FAERS Safety Report 23670072 (Version 2)
Quarter: 2024Q3

REPORT INFORMATION
  Report Type: Spontaneous
  Country: US (occurrence: US)
  Receive Date: 20240325
  Receipt Date: 20240829
  Transmission Date: 20241016
  Serious: Yes (Death, Other)
  Sender: MERCK
  Company Number: US-009507513-2403USA006571

PATIENT
  Sex: Male

DRUGS (1)
  1. KEYTRUDA [Suspect]
     Active Substance: PEMBROLIZUMAB
     Indication: Lip and/or oral cavity cancer
     Dosage: UNK
     Route: 042
     Dates: start: 202001, end: 202003

REACTIONS (14)
  - Death [Fatal]
  - Malignant neoplasm progression [Unknown]
  - Weight decreased [Unknown]
  - Asthenia [Unknown]
  - Drug-disease interaction [Unknown]
  - Drug intolerance [Unknown]
  - Oedema peripheral [Unknown]
  - Gastrointestinal disorder [Unknown]
  - Hyponatraemia [Unknown]
  - General physical health deterioration [Unknown]
  - Dysphagia [Not Recovered/Not Resolved]
  - Diarrhoea [Unknown]
  - Candida infection [Unknown]
  - Gait inability [Unknown]

NARRATIVE: CASE EVENT DATE: 20200101
